FAERS Safety Report 15393043 (Version 1)
Quarter: 2018Q3

REPORT INFORMATION
  Report Type: Spontaneous
  Country: JP (occurrence: JP)
  Receive Date: 20180917
  Receipt Date: 20180917
  Transmission Date: 20181010
  Serious: Yes (Other)
  Sender: FDA-Public Use
  Company Number: JP-PFIZER INC-2018203632

PATIENT
  Age: 60 Year
  Sex: Male

DRUGS (8)
  1. INLYTA [Suspect]
     Active Substance: AXITINIB
     Dosage: 2 MG, 2X/DAY
     Route: 048
     Dates: start: 20180712
  2. THYRADIN?S [Concomitant]
     Active Substance: LEVOTHYROXINE
     Dosage: 50 MG, UNK
  3. INLYTA [Suspect]
     Active Substance: AXITINIB
     Indication: METASTATIC RENAL CELL CARCINOMA
     Dosage: 5 MG, 2X/DAY
     Route: 048
     Dates: start: 20160426, end: 20170404
  4. THYRADIN?S [Concomitant]
     Active Substance: LEVOTHYROXINE
     Dosage: 100 MG, UNK
     Dates: start: 20180517
  5. INLYTA [Suspect]
     Active Substance: AXITINIB
     Dosage: 5 MG, 2X/DAY
     Route: 048
     Dates: start: 20180405, end: 20180613
  6. INLYTA [Suspect]
     Active Substance: AXITINIB
     Indication: METASTATIC RENAL CELL CARCINOMA
     Dosage: 4 MG, 2X/DAY
     Route: 048
     Dates: start: 20180614, end: 20180711
  7. THYRADIN?S [Concomitant]
     Active Substance: LEVOTHYROXINE
     Dosage: 25 MG, UNK
     Dates: start: 20180712
  8. THYRADIN?S [Concomitant]
     Active Substance: LEVOTHYROXINE
     Dosage: 50 MG, UNK
     Dates: start: 20180614

REACTIONS (5)
  - Throat irritation [Not Recovered/Not Resolved]
  - Neoplasm progression [Unknown]
  - Dysgeusia [Unknown]
  - Malaise [Unknown]
  - Paraesthesia oral [Not Recovered/Not Resolved]

NARRATIVE: CASE EVENT DATE: 20180405
